FAERS Safety Report 5385771-2 (Version None)
Quarter: 2007Q3

REPORT INFORMATION
  Report Type: 
  Country: None (occurrence: None)
  Receive Date: 20070712
  Receipt Date: 20070702
  Transmission Date: 20080115
  Serious: Yes (Hospitalization)
  Sender: FDA-Public Use
  Company Number: US-ASTRAZENECA-2006UW23151

PATIENT
  Age: 19895 Day
  Sex: Male
  Weight: 102.3 kg

DRUGS (4)
  1. SEROQUEL [Suspect]
     Indication: BIPOLAR DISORDER
     Dosage: 100 MG - 600 MG DAILY
     Route: 048
     Dates: start: 20040110
  2. SEROQUEL [Suspect]
     Indication: DEPRESSION
     Dosage: 100 MG - 600 MG DAILY
     Route: 048
     Dates: start: 20040110
  3. SEROQUEL [Suspect]
     Route: 048
     Dates: start: 20041201
  4. SEROQUEL [Suspect]
     Route: 048
     Dates: start: 20041201

REACTIONS (3)
  - DIABETES MELLITUS [None]
  - POST PROCEDURAL COMPLICATION [None]
  - VASCULAR OPERATION [None]
